FAERS Safety Report 23686223 (Version 2)
Quarter: 2024Q2

REPORT INFORMATION
  Report Type: Report from Study
  Country: SK (occurrence: SK)
  Receive Date: 20240329
  Receipt Date: 20240417
  Transmission Date: 20240716
  Serious: Yes (Hospitalization)
  Sender: FDA-Public Use
  Company Number: SK-CHIESI-2024CHF01647

PATIENT
  Age: 2 Year
  Sex: Male
  Weight: 16.1 kg

DRUGS (2)
  1. LAMZEDE [Suspect]
     Active Substance: VELMANASE ALFA-TYCV
     Indication: Alpha-mannosidosis
     Dosage: 20 MILLIGRAM, QW
     Route: 042
     Dates: start: 20231113, end: 20231113
  2. LAMZEDE [Suspect]
     Active Substance: VELMANASE ALFA-TYCV
     Dosage: 20 MILLIGRAM, QW
     Route: 042
     Dates: start: 20231122, end: 20231122

REACTIONS (1)
  - Inflammation [Recovered/Resolved]

NARRATIVE: CASE EVENT DATE: 20231113
